FAERS Safety Report 11231244 (Version 1)
Quarter: 2015Q3

REPORT INFORMATION
  Report Type: Spontaneous
  Country: US (occurrence: US)
  Receive Date: 20150701
  Receipt Date: 20150701
  Transmission Date: 20151125
  Serious: Yes (Other)
  Sender: FDA-Public Use
  Company Number: US-PFIZER INC-2015213531

PATIENT
  Age: 54 Year
  Sex: Female
  Weight: 65 kg

DRUGS (14)
  1. LETROZOLE. [Concomitant]
     Active Substance: LETROZOLE
     Dosage: 2.5 MG, DAILY
     Route: 048
  2. XANAX [Suspect]
     Active Substance: ALPRAZOLAM
     Indication: ANXIETY
     Dosage: 0.25 MG, 3X/DAY (AS NEEDED)
     Route: 048
  3. METHADONE HCL [Concomitant]
     Active Substance: METHADONE HYDROCHLORIDE
     Dosage: 40 MG, DAILY (AS DIRECTED, TAKE 2 TABLET IN AM, 1 TABLET IN THE AFTERNOON, AND 1 TABLET AT BED TIME)
     Route: 048
  4. PALBOCICLIB [Concomitant]
     Active Substance: PALBOCICLIB
     Dosage: 125 MG, DAILY
  5. XELODA [Concomitant]
     Active Substance: CAPECITABINE
     Dosage: 1500 MG, 2X/DAY (1 WEEK ON, AND 1 WEEK OFF)
     Dates: start: 20141216
  6. METHADONE HCL [Concomitant]
     Active Substance: METHADONE HYDROCHLORIDE
     Dosage: 10 MG, 3X/DAY (Q 8 HRS)
     Dates: start: 20150225
  7. IBRANCE [Suspect]
     Active Substance: PALBOCICLIB
     Indication: BREAST CANCER
     Dosage: 125 MG, DAILY (DAYS 1-21)
     Route: 048
  8. GABAPENTIN. [Concomitant]
     Active Substance: GABAPENTIN
     Dosage: 900 MG, 3X/DAY
     Route: 048
  9. VITAMIN D2 [Concomitant]
     Active Substance: ERGOCALCIFEROL
     Dosage: 50000 IU,  WEEKLY (1 Q7D)
     Route: 048
  10. NAPROXEN. [Concomitant]
     Active Substance: NAPROXEN
     Dosage: 500 MG, 2X/DAY (AS NEEDED)
     Route: 048
  11. XGEVA [Concomitant]
     Active Substance: DENOSUMAB
     Dosage: 120 MG, UNK (AS DIRECTED)
     Route: 058
     Dates: start: 201207
  12. RANITIDINE HCL [Concomitant]
     Active Substance: RANITIDINE HYDROCHLORIDE
     Dosage: 150 MG, UNK (AS DIRECTED)
     Route: 048
  13. OXYCODONE HCL [Concomitant]
     Active Substance: OXYCODONE HYDROCHLORIDE
     Indication: PAIN
     Dosage: 20 MG, AS NEEDED (TAKE 1 PO Q4-6H)
     Route: 048
     Dates: start: 20141114
  14. METHOCARBAMOL. [Concomitant]
     Active Substance: METHOCARBAMOL
     Dosage: 500 MG, 4X/DAY (AS NEEDED)
     Route: 048

REACTIONS (12)
  - Night sweats [Unknown]
  - Decreased appetite [Unknown]
  - Insomnia [Unknown]
  - Pain [Unknown]
  - Breast cancer female [Unknown]
  - Metastases to bone [Unknown]
  - Muscular weakness [Unknown]
  - Arthropathy [Unknown]
  - Weight decreased [Unknown]
  - Pyrexia [Unknown]
  - Nausea [Unknown]
  - Bone pain [Unknown]
